FAERS Safety Report 16784026 (Version 1)
Quarter: 2019Q3

REPORT INFORMATION
  Report Type: Spontaneous
  Country: US (occurrence: US)
  Receive Date: 20190909
  Receipt Date: 20190909
  Transmission Date: 20191005
  Serious: Yes (Other)
  Sender: FDA-Public Use
  Company Number: US-TEVA-2019-US-1105316

PATIENT
  Age: 52 Year
  Sex: Male
  Weight: 90 kg

DRUGS (15)
  1. SILVER SULFADIAZINE. [Suspect]
     Active Substance: SILVER SULFADIAZINE
     Indication: PYODERMA GANGRENOSUM
     Dosage: TWICE DAILY
     Route: 061
  2. CICLOSPORIN [Suspect]
     Active Substance: CYCLOSPORINE
     Dosage: 100MG THREE TIMES DAILY
     Route: 065
  3. CIPROFLOXACIN. [Suspect]
     Active Substance: CIPROFLOXACIN
     Indication: PYODERMA GANGRENOSUM
     Dosage: 750MG OF TWICE DAILY
     Route: 065
  4. CIPROFLOXACIN. [Suspect]
     Active Substance: CIPROFLOXACIN
     Indication: ANTIBIOTIC THERAPY
  5. METHYLPREDNISOLONE. [Suspect]
     Active Substance: METHYLPREDNISOLONE
     Indication: PYODERMA GANGRENOSUM
     Dosage: 1GM DAILY
     Route: 065
  6. METHOTREXATE. [Suspect]
     Active Substance: METHOTREXATE
     Indication: PYODERMA GANGRENOSUM
     Dosage: 15MG WEEKLY
     Route: 065
  7. CEFAZOLIN [Suspect]
     Active Substance: CEFAZOLIN
     Indication: ANTIBIOTIC THERAPY
  8. PREDNISONE. [Suspect]
     Active Substance: PREDNISONE
     Indication: PYODERMA GANGRENOSUM
     Dosage: 20MG DAILY
     Route: 048
  9. CICLOSPORIN [Suspect]
     Active Substance: CYCLOSPORINE
     Indication: PYODERMA GANGRENOSUM
     Dosage: 100MG TWICE DAILY
     Route: 065
  10. CLOBETASOL [Suspect]
     Active Substance: CLOBETASOL
     Indication: PYODERMA GANGRENOSUM
     Dosage: FORMULATION : PASTE,0.05%
     Route: 050
  11. PREDNISONE. [Suspect]
     Active Substance: PREDNISONE
     Dosage: 30MG DAILY
     Route: 048
  12. TACROLIMUS. [Suspect]
     Active Substance: TACROLIMUS
     Indication: PYODERMA GANGRENOSUM
     Dosage: INITIAL FREQUENCY NOT STATED
     Route: 061
  13. TRIAMCINOLONE [Suspect]
     Active Substance: TRIAMCINOLONE
     Indication: PYODERMA GANGRENOSUM
     Dosage: 1ML INTRAMUSCULAR DOSE OF TRIAMCINOLONE (40MG/ML).
     Route: 030
  14. CEFAZOLIN [Suspect]
     Active Substance: CEFAZOLIN
     Indication: PYODERMA GANGRENOSUM
     Route: 042
  15. THALIDOMIDE [Suspect]
     Active Substance: THALIDOMIDE
     Indication: PYODERMA GANGRENOSUM
     Dosage: 100MG DAILY
     Route: 065

REACTIONS (1)
  - Drug ineffective [Unknown]
